FAERS Safety Report 16427923 (Version 2)
Quarter: 2019Q3

REPORT INFORMATION
  Report Type: Spontaneous
  Country: US (occurrence: US)
  Receive Date: 20190613
  Receipt Date: 20190830
  Transmission Date: 20191004
  Serious: Yes (Other)
  Sender: FDA-Public Use
  Company Number: US-SA-2019SA153749

PATIENT
  Age: 65 Year
  Weight: 79.38 kg

DRUGS (13)
  1. TAXOTERE [Suspect]
     Active Substance: DOCETAXEL
     Indication: BREAST CANCER FEMALE
     Dosage: UNK UNK, UNK
     Route: 042
     Dates: start: 20140828, end: 20140828
  2. NEOSAR [Concomitant]
     Active Substance: CYCLOPHOSPHAMIDE
     Indication: BREAST CANCER FEMALE
     Dosage: UNK
     Dates: start: 1996, end: 2016
  3. METFORMIN [Concomitant]
     Active Substance: METFORMIN HYDROCHLORIDE
     Dosage: UNK
     Dates: start: 1996, end: 2016
  4. CLARITIN [CLARITHROMYCIN] [Concomitant]
     Active Substance: CLARITHROMYCIN
     Dosage: UNK
     Dates: start: 1989, end: 2016
  5. SINGULAIR [Concomitant]
     Active Substance: MONTELUKAST SODIUM
  6. WELCHOL [Concomitant]
     Active Substance: COLESEVELAM HYDROCHLORIDE
  7. VITAMINS C [Concomitant]
     Dosage: UNK
     Dates: start: 1998
  8. CRANBERRY [VACCINIUM SPP.] [Concomitant]
  9. TAXOTERE [Suspect]
     Active Substance: DOCETAXEL
     Dosage: UNK UNK, UNK
     Route: 042
     Dates: start: 20141029, end: 20141029
  10. ATACAND [Concomitant]
     Active Substance: CANDESARTAN CILEXETIL
     Dosage: UNK
     Dates: start: 1992
  11. DYAZIDE [Concomitant]
     Active Substance: HYDROCHLOROTHIAZIDE\TRIAMTERENE
     Dosage: UNK
     Dates: start: 1992, end: 2016
  12. VITAMINS D3 [Concomitant]
  13. FLOVENT [Concomitant]
     Active Substance: FLUTICASONE PROPIONATE

REACTIONS (2)
  - Psychological trauma [Unknown]
  - Alopecia [Not Recovered/Not Resolved]

NARRATIVE: CASE EVENT DATE: 20140828
